FAERS Safety Report 5226806-7 (Version None)
Quarter: 2007Q1

REPORT INFORMATION
  Report Type: 
  Country: None (occurrence: None)
  Receive Date: 20070130
  Receipt Date: 20061224
  Transmission Date: 20070707
  Serious: No
  Sender: FDA-Public Use
  Company Number: ENC200600001

PATIENT
  Age: 41 Year
  Sex: Male

DRUGS (8)
  1. ARGATROBAN [Suspect]
     Indication: PAIN IN EXTREMITY
     Dosage: SEE IMAGE
     Route: 041
     Dates: start: 20061020, end: 20061117
  2. ARGATROBAN [Suspect]
     Indication: SKIN ULCER
     Dosage: SEE IMAGE
     Route: 041
     Dates: start: 20061020, end: 20061117
  3. ARGATROBAN [Suspect]
     Indication: PAIN IN EXTREMITY
     Dosage: SEE IMAGE
     Route: 041
     Dates: start: 20061123, end: 20061129
  4. ARGATROBAN [Suspect]
     Indication: SKIN ULCER
     Dosage: SEE IMAGE
     Route: 041
     Dates: start: 20061123, end: 20061129
  5. WARFARIN SODIUM [Suspect]
     Indication: PAIN IN EXTREMITY
     Dosage: 1 G, TID, ORAL
     Route: 048
     Dates: start: 20061118, end: 20061122
  6. WARFARIN SODIUM [Suspect]
     Indication: SKIN ULCER
     Dosage: 1 G, TID, ORAL
     Route: 048
     Dates: start: 20061118, end: 20061122
  7. OTHER ANALGESICS AND ANTIPYRETICS [Concomitant]
  8. SOLDEM 3A (CARBOHYDRATES NOS, POTASSIUM CHLORIDE, SODIUM CHLORIDE, SOD [Concomitant]

REACTIONS (10)
  - ALANINE AMINOTRANSFERASE INCREASED [None]
  - ASPARTATE AMINOTRANSFERASE INCREASED [None]
  - BACTERIAL INFECTION [None]
  - BLOOD ALKALINE PHOSPHATASE INCREASED [None]
  - C-REACTIVE PROTEIN INCREASED [None]
  - CHOLECYSTITIS [None]
  - GAMMA-GLUTAMYLTRANSFERASE INCREASED [None]
  - HEPATIC FUNCTION ABNORMAL [None]
  - OFF LABEL USE [None]
  - WHITE BLOOD CELL COUNT INCREASED [None]
